FAERS Safety Report 16898928 (Version 5)
Quarter: 2021Q2

REPORT INFORMATION
  Report Type: Spontaneous
  Country: US (occurrence: US)
  Receive Date: 20191009
  Receipt Date: 20210406
  Transmission Date: 20210716
  Serious: Yes (Other)
  Sender: FDA-Public Use
  Company Number: US-PFIZER INC-2019431082

PATIENT
  Age: 56 Year
  Sex: Female
  Weight: 68.04 kg

DRUGS (7)
  1. LYRICA [Suspect]
     Active Substance: PREGABALIN
     Indication: PAIN
     Dosage: 150 MG, 2X/DAY (EVERY 12 HOURS)
     Route: 048
  2. LYRICA [Suspect]
     Active Substance: PREGABALIN
     Indication: SCOLIOSIS
  3. LYRICA [Suspect]
     Active Substance: PREGABALIN
     Indication: FIBROMYALGIA
     Dosage: UNK
  4. PAROXETINE. [Concomitant]
     Active Substance: PAROXETINE
     Indication: HORMONE REPLACEMENT THERAPY
     Dosage: 40 MG (BEEN TAKING FOR AT LEAST 10 YEARS)
  5. PERCOCET [Concomitant]
     Active Substance: ACETAMINOPHEN\OXYCODONE HYDROCHLORIDE
     Indication: PAIN
     Dosage: 7.5 MG (BEEN ON THIS DOSE FOR 2?3 YEARS NOW)
  6. LYRICA [Suspect]
     Active Substance: PREGABALIN
     Indication: RHEUMATOID ARTHRITIS
  7. PERCOCET [Concomitant]
     Active Substance: ACETAMINOPHEN\OXYCODONE HYDROCHLORIDE
     Dosage: 10 MG

REACTIONS (10)
  - Hyperhidrosis [Unknown]
  - Feeling abnormal [Unknown]
  - Fatigue [Unknown]
  - Myocardial infarction [Recovered/Resolved]
  - Chills [Unknown]
  - Malaise [Unknown]
  - Diarrhoea [Unknown]
  - Fall [Unknown]
  - Cold sweat [Unknown]
  - Bone disorder [Unknown]

NARRATIVE: CASE EVENT DATE: 202007
